FAERS Safety Report 22083430 (Version 5)
Quarter: 2024Q2

REPORT INFORMATION
  Report Type: Spontaneous
  Country: US (occurrence: US)
  Receive Date: 20230310
  Receipt Date: 20240423
  Transmission Date: 20240716
  Serious: No
  Sender: FDA-Public Use
  Company Number: US-PFIZER INC-202300099992

PATIENT
  Age: 10 Year
  Sex: Female
  Weight: 29.478 kg

DRUGS (2)
  1. GENOTROPIN [Suspect]
     Active Substance: SOMATROPIN
     Indication: Short stature
     Dosage: UNK, 1X/DAY (1.2 INJECTION ONCE A DAY)
  2. GENOTROPIN [Suspect]
     Active Substance: SOMATROPIN
     Dosage: DAILY DOSE: 1.2 MG/DAY

REACTIONS (3)
  - Device leakage [Unknown]
  - Wrong technique in device usage process [Unknown]
  - Drug dose omission by device [Unknown]
